FAERS Safety Report 19710065 (Version 1)
Quarter: 2021Q3

REPORT INFORMATION
  Report Type: Report from Study
  Country: CA (occurrence: CA)
  Receive Date: 20210817
  Receipt Date: 20210817
  Transmission Date: 20211014
  Serious: Yes (Hospitalization, Other)
  Sender: FDA-Public Use
  Company Number: CA-PFIZER INC-202100986115

PATIENT
  Age: 63 Year
  Sex: Female

DRUGS (6)
  1. HUMIRA [Suspect]
     Active Substance: ADALIMUMAB
     Indication: CROHN^S DISEASE
     Dosage: 40 MG, CYCLIC (1 EVERY 2 WEEKS)
     Route: 058
  2. ERTAPENEM. [Suspect]
     Active Substance: ERTAPENEM SODIUM
     Indication: INFECTION
     Dosage: UNK
     Route: 042
  3. VANCOMYCIN HCL [Suspect]
     Active Substance: VANCOMYCIN HYDROCHLORIDE
     Indication: INFECTION
     Route: 042
  4. CIPRO [Suspect]
     Active Substance: CIPROFLOXACIN HYDROCHLORIDE
     Indication: INFECTION
     Dosage: UNK
     Route: 065
  5. HUMIRA [Suspect]
     Active Substance: ADALIMUMAB
     Indication: CROHN^S DISEASE
     Dosage: UNK
     Route: 058
  6. HUMIRA [Suspect]
     Active Substance: ADALIMUMAB
     Dosage: 80 MG, CYCLIC (1 EVERY 2 WEEKS)
     Route: 058

REACTIONS (25)
  - Infection [Not Recovered/Not Resolved]
  - Inflammation [Not Recovered/Not Resolved]
  - Intestinal mass [Not Recovered/Not Resolved]
  - Mass [Not Recovered/Not Resolved]
  - Diarrhoea [Not Recovered/Not Resolved]
  - Anal fistula [Not Recovered/Not Resolved]
  - Colonic fistula [Not Recovered/Not Resolved]
  - Crohn^s disease [Not Recovered/Not Resolved]
  - Enterococcal infection [Not Recovered/Not Resolved]
  - Drug ineffective [Not Recovered/Not Resolved]
  - Rash erythematous [Not Recovered/Not Resolved]
  - Anal stenosis [Not Recovered/Not Resolved]
  - Angiopathy [Not Recovered/Not Resolved]
  - Anorectal disorder [Not Recovered/Not Resolved]
  - Bacterial test positive [Not Recovered/Not Resolved]
  - Enterocolonic fistula [Not Recovered/Not Resolved]
  - Levator syndrome [Not Recovered/Not Resolved]
  - Bloody discharge [Not Recovered/Not Resolved]
  - Pain [Not Recovered/Not Resolved]
  - Pseudopolyp [Not Recovered/Not Resolved]
  - Rash papular [Not Recovered/Not Resolved]
  - Gastrointestinal disorder [Not Recovered/Not Resolved]
  - Haemoglobin increased [Not Recovered/Not Resolved]
  - Impaired healing [Not Recovered/Not Resolved]
  - Skin induration [Not Recovered/Not Resolved]
